FAERS Safety Report 25874844 (Version 1)
Quarter: 2025Q4

REPORT INFORMATION
  Report Type: Spontaneous
  Country: JP (occurrence: JP)
  Receive Date: 20251002
  Receipt Date: 20251002
  Transmission Date: 20260117
  Serious: Yes (Hospitalization, Other)
  Sender: JOHNSON AND JOHNSON
  Company Number: JP-BAYER-2023A102639

PATIENT
  Age: 73 Year
  Sex: Male
  Weight: 79.6 kg

DRUGS (2)
  1. XARELTO [Suspect]
     Active Substance: RIVAROXABAN
     Indication: Pulmonary embolism
     Dosage: DAILY DOSE 30 MG
     Route: 048
     Dates: start: 20220920
  2. ZOSYN [Concomitant]
     Active Substance: PIPERACILLIN SODIUM\TAZOBACTAM SODIUM
     Indication: Hepatic cyst infection

REACTIONS (3)
  - Haemorrhagic ascites [Recovering/Resolving]
  - Haemorrhagic hepatic cyst [Recovering/Resolving]
  - Hepatic cyst ruptured [Recovering/Resolving]

NARRATIVE: CASE EVENT DATE: 20221025
